FAERS Safety Report 23480603 (Version 1)
Quarter: 2024Q1

REPORT INFORMATION
  Report Type: Spontaneous
  Country: GB (occurrence: GB)
  Receive Date: 20240205
  Receipt Date: 20240205
  Transmission Date: 20240410
  Serious: Yes (Other)
  Sender: FDA-Public Use
  Company Number: GB-HAMELN-2023HAM001554

PATIENT
  Age: 76 Year
  Sex: Male

DRUGS (1)
  1. LIDOCAINE [Suspect]
     Active Substance: LIDOCAINE
     Indication: Product used for unknown indication
     Dosage: UNK, LIDOCAINE HYDROCHLORIDE INJECTION BP 1% W/V
     Route: 050
     Dates: start: 20231209, end: 20231209

REACTIONS (3)
  - Corneal opacity [Recovered/Resolved]
  - Incorrect route of product administration [Recovered/Resolved]
  - Contraindicated product administered [Recovered/Resolved]

NARRATIVE: CASE EVENT DATE: 20231209
